FAERS Safety Report 21608667 (Version 1)
Quarter: 2022Q4

REPORT INFORMATION
  Report Type: Spontaneous
  Country: FR (occurrence: FR)
  Receive Date: 20221117
  Receipt Date: 20221117
  Transmission Date: 20230113
  Serious: Yes (Other)
  Sender: FDA-Public Use
  Company Number: FR-ROCHE-2725548

PATIENT
  Age: 57 Year
  Sex: Female
  Weight: 52 kg

DRUGS (8)
  1. BEVACIZUMAB [Suspect]
     Active Substance: BEVACIZUMAB
     Indication: Colorectal cancer metastatic
     Dosage: SINGLE DOSE, SOLUTION FOR INFUSION
     Route: 042
     Dates: start: 20210104, end: 20210104
  2. PEGFILGRASTIM [Suspect]
     Active Substance: PEGFILGRASTIM
     Indication: Product used for unknown indication
     Dosage: UNK
     Route: 065
  3. CAPECITABINE [Suspect]
     Active Substance: CAPECITABINE
     Indication: Colorectal cancer metastatic
     Dosage: 4000MG,BID,CYCLE1,LAST DOSE PRIOR SAE:18/JAN/21
     Route: 065
     Dates: end: 20210118
  4. CAPECITABINE [Suspect]
     Active Substance: CAPECITABINE
     Dosage: CYCLICAL,CYCLE1, LAST DOSE PRIOR SAE: 04/JAN/21
     Route: 065
     Dates: start: 20201123, end: 20210104
  5. CAPECITABINE [Suspect]
     Active Substance: CAPECITABINE
     Dosage: 2000 MILLIGRAM,BD, MORNING EVENING
     Route: 065
     Dates: end: 20210117
  6. OXALIPLATIN [Suspect]
     Active Substance: OXALIPLATIN
     Indication: Colorectal cancer metastatic
     Dosage: 260 MILLIGRAM, 1 CYCLICAL
     Route: 065
     Dates: start: 20201123, end: 20210104
  7. ATEZOLIZUMAB [Suspect]
     Active Substance: ATEZOLIZUMAB
     Indication: Colorectal cancer metastatic
     Dosage: 1200 MILLIGRAM, 1 CYCLICAL
     Route: 065
     Dates: start: 20201123, end: 20210104
  8. YTTRIUM CHLORIDE Y-90 [Suspect]
     Active Substance: YTTRIUM CHLORIDE Y-90
     Indication: Colorectal cancer metastatic
     Dosage: 311 MGY
     Route: 065
     Dates: start: 20201217, end: 20201217

REACTIONS (2)
  - Peripheral sensory neuropathy [Recovered/Resolved with Sequelae]
  - Drug hypersensitivity [Recovered/Resolved with Sequelae]

NARRATIVE: CASE EVENT DATE: 20201124
